FAERS Safety Report 16216483 (Version 1)
Quarter: 2019Q2

REPORT INFORMATION
  Report Type: Spontaneous
  Country: FR (occurrence: FR)
  Receive Date: 20190419
  Receipt Date: 20190419
  Transmission Date: 20190711
  Serious: Yes (Hospitalization)
  Sender: FDA-Public Use
  Company Number: FR-PFIZER INC-2019161122

PATIENT
  Age: 76 Year
  Sex: Male
  Weight: 67 kg

DRUGS (5)
  1. PREDNISOLONE. [Concomitant]
     Active Substance: PREDNISOLONE
     Indication: B-CELL LYMPHOMA
     Dosage: 74 MG, 1X/DAY
     Route: 048
     Dates: start: 20190221, end: 20190225
  2. DOXORUBICIN HCL [Suspect]
     Active Substance: DOXORUBICIN HYDROCHLORIDE
     Indication: B-CELL LYMPHOMA
     Dosage: 92 MG, SINGLE
     Route: 042
     Dates: start: 20190221, end: 20190221
  3. VINCRISTINE SULFATE. [Concomitant]
     Active Substance: VINCRISTINE SULFATE
     Indication: B-CELL LYMPHOMA
     Dosage: 1 MG, SINGLE
     Route: 042
     Dates: start: 20190207, end: 20190207
  4. TRUXIMA [Suspect]
     Active Substance: RITUXIMAB-ABBS
     Indication: B-CELL LYMPHOMA
     Dosage: 690 MG, SINGLE
     Route: 042
     Dates: start: 20190221, end: 20190221
  5. ENDOXAN [CYCLOPHOSPHAMIDE] [Suspect]
     Active Substance: CYCLOPHOSPHAMIDE
     Indication: B-CELL LYMPHOMA
     Dosage: 1380 MG, SINGLE
     Route: 042
     Dates: start: 20190221, end: 20190221

REACTIONS (2)
  - Pneumocystis jirovecii pneumonia [Recovering/Resolving]
  - Pneumonia klebsiella [Recovering/Resolving]

NARRATIVE: CASE EVENT DATE: 20190225
